FAERS Safety Report 13918277 (Version 2)
Quarter: 2018Q3

REPORT INFORMATION
  Report Type: Report from Study
  Country: US (occurrence: US)
  Receive Date: 20170829
  Receipt Date: 20180807
  Transmission Date: 20181010
  Serious: Yes (Other)
  Sender: FDA-Public Use
  Company Number: US-SA-2017SA092035

PATIENT
  Age: 46 Year
  Sex: Female

DRUGS (3)
  1. BENADRYL [Concomitant]
     Active Substance: DIPHENHYDRAMINE HYDROCHLORIDE
     Indication: PREMEDICATION
     Dosage: UNK
  2. AGALSIDASE BETA [Suspect]
     Active Substance: AGALSIDASE BETA
     Indication: FABRY^S DISEASE
     Dosage: 100 MG, QOW
     Route: 041
     Dates: start: 20080422
  3. ASA [Concomitant]
     Active Substance: ASPIRIN
     Indication: PREMEDICATION
     Dosage: UNK

REACTIONS (8)
  - Protein urine present [Unknown]
  - Diarrhoea [Unknown]
  - Dizziness [Unknown]
  - Abdominal pain upper [Unknown]
  - Ovarian disorder [Recovering/Resolving]
  - Burning sensation [Unknown]
  - Temperature intolerance [Unknown]
  - Pain [Unknown]
